FAERS Safety Report 14318589 (Version 17)
Quarter: 2019Q3

REPORT INFORMATION
  Report Type: Spontaneous
  Country: LT (occurrence: LT)
  Receive Date: 20171222
  Receipt Date: 20190712
  Transmission Date: 20191004
  Serious: Yes (Life-Threatening, Hospitalization, Other)
  Sender: FDA-Public Use
  Company Number: LT-009507513-1712LTU009307

PATIENT
  Age: 53 Year
  Sex: Female

DRUGS (19)
  1. DEXAMETHASONE. [Interacting]
     Active Substance: DEXAMETHASONE
     Indication: PREMEDICATION
     Dosage: 4 MG (8 TABLETS), DAILY
     Route: 048
     Dates: start: 20161120, end: 20161121
  2. MANNITOL. [Interacting]
     Active Substance: MANNITOL
     Indication: TOXICITY TO VARIOUS AGENTS
     Dosage: 1000 ML, DAILY (10 PROC.)
     Route: 042
     Dates: start: 2016
  3. FENTANYL. [Interacting]
     Active Substance: FENTANYL
     Indication: PAIN PROPHYLAXIS
  4. APREPITANT. [Suspect]
     Active Substance: APREPITANT
     Indication: PROPHYLAXIS OF NAUSEA AND VOMITING
     Dosage: 125 MG, DAILY
     Route: 048
     Dates: start: 20161121, end: 20161121
  5. TRAMADOL HYDROCHLORIDE. [Interacting]
     Active Substance: TRAMADOL HYDROCHLORIDE
     Indication: PAIN MANAGEMENT
     Dosage: 100 MG, DAILY (LONG-TERM USE)
     Route: 048
     Dates: start: 2016
  6. SHARK CARTILAGE [Interacting]
     Active Substance: SHARK CARTILAGE\SHARK, UNSPECIFIED
     Dosage: 7.5 ML, DAILY
     Route: 048
     Dates: start: 2016
  7. TIANEPTINE [Interacting]
     Active Substance: TIANEPTINE
     Indication: DEPRESSION
  8. FENTANYL. [Interacting]
     Active Substance: FENTANYL
     Indication: PAIN MANAGEMENT
     Dosage: UNK, DAILY (75 UG/H, LONG-TERM USE)
     Route: 061
  9. ALPRAZOLAM. [Interacting]
     Active Substance: ALPRAZOLAM
     Indication: ANXIETY DISORDER
     Dosage: 0.5 MG, DAILY (LONG-TERM USE)
     Route: 048
  10. CYANOCOBALAMIN. [Interacting]
     Active Substance: CYANOCOBALAMIN
     Indication: PREMEDICATION
     Dosage: 1000 MG, UNK
     Route: 042
     Dates: start: 2016
  11. FOLIC ACID. [Interacting]
     Active Substance: FOLIC ACID
     Indication: PREMEDICATION
     Dosage: 1000 MG, DAILY
     Route: 042
     Dates: start: 2016
  12. DEXAMETHASONE. [Interacting]
     Active Substance: DEXAMETHASONE
     Indication: DRUG TOLERANCE
  13. TIANEPTINE [Interacting]
     Active Substance: TIANEPTINE
     Indication: PAIN MANAGEMENT
     Dosage: 12.5 MG, DAILY (LONG-TERM USE)
     Route: 048
     Dates: start: 2016
  14. MANNITOL. [Interacting]
     Active Substance: MANNITOL
     Indication: DRUG TOXICITY PROPHYLAXIS
  15. ONDANSETRON [Interacting]
     Active Substance: ONDANSETRON
     Indication: PROPHYLAXIS OF NAUSEA AND VOMITING
     Dosage: 8 MG, DAILY
     Route: 048
     Dates: start: 20161121, end: 20161121
  16. BETALOC ZOK [Interacting]
     Active Substance: METOPROLOL SUCCINATE
     Indication: HYPERTENSION
     Dosage: 47.5 MG, DAILY (LONG-TERM USE)
     Route: 048
     Dates: start: 2016
  17. CISPLATIN. [Interacting]
     Active Substance: CISPLATIN
     Indication: PLEURAL MESOTHELIOMA
     Dosage: 0.5MG/ML 100ML -II CYCLE
     Route: 042
     Dates: start: 20161101
  18. PEMETREXED DISODIUM [Interacting]
     Active Substance: PEMETREXED DISODIUM
     Indication: PLEURAL MESOTHELIOMA
     Dosage: II CYCLE, CYCLICAL
     Route: 065
     Dates: start: 20161101
  19. MANNITOL. [Interacting]
     Active Substance: MANNITOL
     Indication: DRUG TOXICITY PROPHYLAXIS

REACTIONS (9)
  - Toxicity to various agents [Unknown]
  - Anaphylactic reaction [Recovered/Resolved]
  - Hypomagnesaemia [Unknown]
  - Sudden cardiac death [Recovered/Resolved]
  - Cardio-respiratory arrest [Recovering/Resolving]
  - Haemodynamic instability [Recovered/Resolved]
  - Cardiotoxicity [Recovered/Resolved]
  - Hypersensitivity [Recovered/Resolved]
  - Drug interaction [Unknown]

NARRATIVE: CASE EVENT DATE: 2016
